FAERS Safety Report 11596854 (Version 1)
Quarter: 2015Q4

REPORT INFORMATION
  Report Type: Spontaneous
  Country: BE (occurrence: BE)
  Receive Date: 20151006
  Receipt Date: 20151006
  Transmission Date: 20160304
  Serious: Yes (Other)
  Sender: FDA-Public Use
  Company Number: BE-OTSUKA-US-2015-11521

PATIENT

DRUGS (1)
  1. ABILIFY MAINTENA [Suspect]
     Active Substance: ARIPIPRAZOLE
     Indication: PRODUCT USED FOR UNKNOWN INDICATION
     Dosage: 400 MG MILLIGRAM(S), PER MONTH
     Route: 030
     Dates: start: 201501

REACTIONS (2)
  - Bladder dilatation [Recovering/Resolving]
  - Benign prostatic hyperplasia [Recovering/Resolving]

NARRATIVE: CASE EVENT DATE: 201501
